FAERS Safety Report 13763199 (Version 1)
Quarter: 2017Q3

REPORT INFORMATION
  Report Type: Spontaneous
  Country: US (occurrence: US)
  Receive Date: 20170718
  Receipt Date: 20170718
  Transmission Date: 20171127
  Serious: Yes (Hospitalization, Disabling, Other)
  Sender: FDA-Public Use
  Company Number: None

PATIENT
  Age: 70 Year
  Sex: Female
  Weight: 108.86 kg

DRUGS (10)
  1. DIAZEPAM. [Concomitant]
     Active Substance: DIAZEPAM
  2. CLARITIN [Concomitant]
     Active Substance: LORATADINE
  3. OTEZLA [Concomitant]
     Active Substance: APREMILAST
  4. METFORMIN [Concomitant]
     Active Substance: METFORMIN HYDROCHLORIDE
  5. IBUPROFEN. [Concomitant]
     Active Substance: IBUPROFEN
  6. VITAMIN D [Concomitant]
     Active Substance: CHOLECALCIFEROL
  7. XARELTO [Suspect]
     Active Substance: RIVAROXABAN
     Indication: THROMBOSIS PROPHYLAXIS
     Route: 048
     Dates: start: 20170523, end: 20170624
  8. ORACEA [Concomitant]
     Active Substance: DOXYCYCLINE
  9. MELATONIN [Concomitant]
     Active Substance: MELATONIN
  10. BENADRYL [Concomitant]
     Active Substance: DIPHENHYDRAMINE HYDROCHLORIDE

REACTIONS (5)
  - Pain [None]
  - Blood pressure increased [None]
  - Tremor [None]
  - Musculoskeletal pain [None]
  - Myocardial infarction [None]

NARRATIVE: CASE EVENT DATE: 20170623
